FAERS Safety Report 7153250-8 (Version None)
Quarter: 2010Q4

REPORT INFORMATION
  Report Type: 
  Country: None (occurrence: None)
  Receive Date: 20101213
  Receipt Date: 20101203
  Transmission Date: 20110411
  Serious: Yes (Hospitalization)
  Sender: FDA-Public Use
  Company Number: JP-ROCHE-730936

PATIENT
  Sex: Female
  Weight: 57 kg

DRUGS (9)
  1. ACTEMRA [Suspect]
     Indication: RHEUMATOID ARTHRITIS
     Route: 042
     Dates: start: 20100827
  2. AZULFIDINE [Concomitant]
     Route: 048
     Dates: end: 20100914
  3. CYTOTEC [Concomitant]
     Dosage: FORM:PREORAL AGENT
     Route: 048
     Dates: end: 20100914
  4. RIMATIL [Concomitant]
     Route: 048
     Dates: end: 20100914
  5. PROGRAF [Concomitant]
     Route: 048
     Dates: end: 20100914
  6. METOLATE [Concomitant]
     Route: 048
     Dates: end: 20100914
  7. FOLIAMIN [Concomitant]
     Route: 048
     Dates: end: 20100914
  8. SEIBULE [Concomitant]
     Route: 048
  9. BONALON [Concomitant]
     Route: 048
     Dates: end: 20100914

REACTIONS (1)
  - INTERSTITIAL LUNG DISEASE [None]
